FAERS Safety Report 21341564 (Version 1)
Quarter: 2022Q3

REPORT INFORMATION
  Report Type: Spontaneous
  Country: US (occurrence: None)
  Receive Date: 20220915
  Receipt Date: 20220915
  Transmission Date: 20221027
  Serious: Yes (Other)
  Sender: FDA-Public Use
  Company Number: None

PATIENT
  Age: 50 Year
  Sex: Female

DRUGS (5)
  1. PAXLOVID [Suspect]
     Active Substance: NIRMATRELVIR\RITONAVIR
     Indication: COVID-19
     Dosage: FREQUENCY : TWICE A DAY;?
  2. KEPPRA [Concomitant]
     Active Substance: LEVETIRACETAM
  3. HERBALS [Concomitant]
     Active Substance: HERBALS
  4. ZINC [Concomitant]
     Active Substance: ZINC
  5. VITAMIN D NOS [Concomitant]
     Active Substance: VITAMIN D NOS

REACTIONS (8)
  - Muscle spasms [None]
  - Diarrhoea [None]
  - Skin discolouration [None]
  - Chromaturia [None]
  - Gastrointestinal sounds abnormal [None]
  - Vomiting [None]
  - Yellow skin [None]
  - Hepatic pain [None]

NARRATIVE: CASE EVENT DATE: 20220907
